FAERS Safety Report 7279155-X (Version None)
Quarter: 2011Q1

REPORT INFORMATION
  Report Type: 
  Country: None (occurrence: None)
  Receive Date: 20110207
  Receipt Date: 20110202
  Transmission Date: 20110831
  Serious: Yes (Hospitalization, Other)
  Sender: FDA-Public Use
  Company Number: US-PFIZER INC-2011022890

PATIENT
  Age: 69 Year
  Sex: Female

DRUGS (4)
  1. FERROUS SULFATE [Concomitant]
  2. HYDRALAZINE [Concomitant]
     Dosage: 25 MG, 2X/DAY
  3. VERAPAMIL HCL [Suspect]
     Dosage: 120 MG, 1X/DAY
  4. ESOMEPRAZOLE [Concomitant]
     Dosage: 10 MG, 1X/DAY

REACTIONS (6)
  - CONFUSIONAL STATE [None]
  - BRADYCARDIA [None]
  - HYPOTENSION [None]
  - ATRIOVENTRICULAR BLOCK COMPLETE [None]
  - ASTHENIA [None]
  - PRESYNCOPE [None]
